FAERS Safety Report 8936193 (Version 1)
Quarter: 2012Q4

REPORT INFORMATION
  Report Type: 
  Country: US (occurrence: US)
  Receive Date: 20121130
  Receipt Date: 20121130
  Transmission Date: 20130627
  Serious: No
  Sender: FDA-Public Use
  Company Number: US-ABBOTT-12P-163-0976853-00

PATIENT
  Age: 50 Year
  Sex: Male

DRUGS (3)
  1. ANDROGEL [Suspect]
     Indication: BLOOD TESTOSTERONE DECREASED
     Dates: start: 20120901, end: 20120904
  2. ANDROGEL [Suspect]
     Dates: start: 2007, end: 20120831
  3. ANDROGEL [Suspect]
     Dates: start: 20120905

REACTIONS (3)
  - Fatigue [Recovered/Resolved]
  - Drug ineffective [Recovered/Resolved]
  - Libido decreased [Recovered/Resolved]
